FAERS Safety Report 10255362 (Version 2)
Quarter: 2014Q3

REPORT INFORMATION
  Report Type: Spontaneous
  Country: US (occurrence: US)
  Receive Date: 20140624
  Receipt Date: 20140707
  Transmission Date: 20150326
  Serious: No
  Sender: FDA-Public Use
  Company Number: US-PFIZER INC-2014169442

PATIENT
  Sex: Female

DRUGS (6)
  1. ARMOUR THYROID [Concomitant]
     Active Substance: THYROID, PORCINE\THYROID, UNSPECIFIED
     Indication: THYROID DISORDER
     Dosage: UNK
  2. LYRICA [Suspect]
     Active Substance: PREGABALIN
     Indication: SYSTEMIC LUPUS ERYTHEMATOSUS
     Dosage: 50 MG, 1X/DAY
     Route: 048
     Dates: start: 2014, end: 2014
  3. LYRICA [Suspect]
     Active Substance: PREGABALIN
     Indication: PAIN OF SKIN
  4. LYRICA [Suspect]
     Active Substance: PREGABALIN
     Indication: INSOMNIA
  5. TRAZODONE [Concomitant]
     Active Substance: TRAZODONE HYDROCHLORIDE
     Dosage: UNK
  6. LYRICA [Suspect]
     Active Substance: PREGABALIN
     Indication: ARTHRALGIA
     Dosage: 75 MG, 1X/DAY
     Route: 048
     Dates: start: 2014, end: 2014

REACTIONS (2)
  - Dizziness [Unknown]
  - Drug ineffective for unapproved indication [Unknown]

NARRATIVE: CASE EVENT DATE: 2014
